FAERS Safety Report 23826848 (Version 1)
Quarter: 2024Q2

REPORT INFORMATION
  Report Type: Spontaneous
  Country: US (occurrence: US)
  Receive Date: 20240507
  Receipt Date: 20240507
  Transmission Date: 20240716
  Serious: Yes (Hospitalization, Other)
  Sender: FDA-Public Use
  Company Number: US-PFIZER INC-PV202400058229

PATIENT

DRUGS (27)
  1. DOXYCYCLINE HYCLATE [Suspect]
     Active Substance: DOXYCYCLINE HYCLATE
     Indication: Rosacea
  2. CIPROFLOXACIN [Suspect]
     Active Substance: CIPROFLOXACIN
     Indication: Dysbiosis
  3. LEVOTHYROXINE SODIUM [Suspect]
     Active Substance: LEVOTHYROXINE SODIUM
     Indication: Hypothyroidism
     Dosage: UNK
     Dates: start: 2016
  4. LORAZEPAM [Suspect]
     Active Substance: LORAZEPAM
     Indication: Depression
     Dosage: 0.25 MG, QD (ONCE DAILY)
     Dates: start: 2015
  5. METHYLPHENIDATE HYDROCHLORIDE [Suspect]
     Active Substance: METHYLPHENIDATE HYDROCHLORIDE
     Indication: Depression
     Dosage: UNK
  6. DULOXETINE HYDROCHLORIDE [Suspect]
     Active Substance: DULOXETINE HYDROCHLORIDE
     Indication: Depression
     Dosage: UNK
     Dates: start: 2015, end: 2015
  7. RISPERIDONE [Suspect]
     Active Substance: RISPERIDONE
     Indication: Depression
     Dosage: UNK
  8. AMITRIPTYLINE HYDROCHLORIDE [Suspect]
     Active Substance: AMITRIPTYLINE HYDROCHLORIDE
     Indication: Depression
     Dosage: UNK
  9. BUPROPION [Suspect]
     Active Substance: BUPROPION
     Indication: Depression
     Dosage: UNK
  10. CLONAZEPAM [Suspect]
     Active Substance: CLONAZEPAM
     Indication: Depression
     Dosage: UNK
  11. CLONIDINE [Suspect]
     Active Substance: CLONIDINE
     Indication: Depression
     Dosage: UNK
  12. FLUOXETINE [Suspect]
     Active Substance: FLUOXETINE HYDROCHLORIDE
     Indication: Depression
     Dosage: UNK
  13. HYDROCODONE BITARTRATE AND ACETAMINOPHEN [Suspect]
     Active Substance: ACETAMINOPHEN\HYDROCODONE BITARTRATE
     Indication: Migraine
     Dosage: UNK
  14. LITHIUM [Suspect]
     Active Substance: LITHIUM
     Indication: Depression
     Dosage: UNK
  15. METHADONE [Suspect]
     Active Substance: METHADONE HYDROCHLORIDE
     Indication: Migraine
     Dosage: UNK
  16. SERTRALINE HYDROCHLORIDE [Suspect]
     Active Substance: SERTRALINE HYDROCHLORIDE
     Indication: Depression
  17. TRANYLCYPROMINE SULFATE [Suspect]
     Active Substance: TRANYLCYPROMINE SULFATE
     Indication: Depression
     Dosage: UNK
  18. TRAZODONE HYDROCHLORIDE [Suspect]
     Active Substance: TRAZODONE HYDROCHLORIDE
     Indication: Depression
     Dosage: UNK
  19. DIVALPROEX SODIUM [Suspect]
     Active Substance: DIVALPROEX SODIUM
     Indication: Depression
  20. VENLAFAXINE HYDROCHLORIDE [Suspect]
     Active Substance: VENLAFAXINE HYDROCHLORIDE
     Indication: Depression
     Dosage: UNK
  21. TYROSINE [Concomitant]
     Active Substance: TYROSINE
     Dosage: UNK
  22. HERBALS [Concomitant]
     Active Substance: HERBALS
     Dosage: UNK
  23. ACETYLCYSTEINE [Concomitant]
     Active Substance: ACETYLCYSTEINE
     Dosage: UNK
  24. TRYPTOPHAN [Concomitant]
     Active Substance: TRYPTOPHAN
     Dosage: UNK
  25. MAGNESIUM [Concomitant]
     Active Substance: MAGNESIUM
     Dosage: UNK
  26. THIOCTIC ACID [Concomitant]
     Active Substance: THIOCTIC ACID
     Dosage: UNK
  27. UBIQUINOL [Concomitant]
     Active Substance: UBIQUINOL
     Dosage: UNK

REACTIONS (46)
  - Abdominal distension [Recovered/Resolved]
  - Akathisia [Recovered/Resolved]
  - Anger [Unknown]
  - Antidepressant discontinuation syndrome [Recovered/Resolved]
  - Asthenia [Recovered/Resolved]
  - Blood cholesterol increased [Unknown]
  - Brain fog [Recovered/Resolved]
  - Condition aggravated [Recovered/Resolved]
  - Constipation [Recovered/Resolved]
  - Discomfort [Recovered/Resolved]
  - Disturbance in attention [Recovered/Resolved]
  - Drug dependence [Recovered/Resolved]
  - Drug ineffective [Unknown]
  - Drug resistance [Unknown]
  - Dyspepsia [Recovered/Resolved]
  - Eczema [Unknown]
  - Electric shock sensation [Recovered/Resolved]
  - Electronic cigarette user [Unknown]
  - Exercise tolerance decreased [Recovered/Resolved]
  - Fatigue [Recovered/Resolved]
  - Fear [Recovered/Resolved]
  - Food allergy [Unknown]
  - Gait inability [Unknown]
  - Gastrointestinal disorder [Recovered/Resolved]
  - Gastrooesophageal reflux disease [Unknown]
  - Intrusive thoughts [Recovered/Resolved]
  - Irritability [Unknown]
  - Loss of libido [Recovered/Resolved]
  - Mood altered [Recovered/Resolved]
  - Mood swings [Recovered/Resolved]
  - Sleep disorder [Recovered/Resolved]
  - Pain [Recovered/Resolved]
  - Mood altered [Recovered/Resolved]
  - Weight increased [Recovered/Resolved]
  - Suicidal ideation [Recovered/Resolved]
  - Sluggishness [Unknown]
  - Tachyphrenia [Recovered/Resolved]
  - Neuropathy peripheral [Recovered/Resolved]
  - Memory impairment [Recovered/Resolved]
  - Muscular weakness [Recovered/Resolved]
  - Intentional overdose [Unknown]
  - Rosacea [Recovered/Resolved]
  - Substance abuse [Recovered/Resolved]
  - Thinking abnormal [Recovered/Resolved]
  - Pain in extremity [Recovered/Resolved]
  - Off label use [Unknown]

NARRATIVE: CASE EVENT DATE: 20160101
